FAERS Safety Report 19486023 (Version 1)
Quarter: 2021Q3

REPORT INFORMATION
  Report Type: Spontaneous
  Country: DE (occurrence: DE)
  Receive Date: 20210702
  Receipt Date: 20210702
  Transmission Date: 20211014
  Serious: Yes (Hospitalization)
  Sender: FDA-Public Use
  Company Number: DE-009507513-2106DEU007373

PATIENT
  Age: 69 Year
  Sex: Female
  Weight: 52 kg

DRUGS (12)
  1. PEMBROLIZUMAB. [Suspect]
     Active Substance: PEMBROLIZUMAB
     Dosage: NK MG
  2. METAMIZOLE [Suspect]
     Active Substance: METAMIZOLE
     Dosage: 20 GTT DROPS, Q8H, 500 MG/ML, 20?20?20?0, DROPS
     Route: 048
  3. ACETYLCYSTEIN [Concomitant]
     Active Substance: ACETYLCYSTEINE
     Dosage: 600 MG, QD, 1?0?0?0, EFFERVESCENT TABLETS
     Route: 048
  4. TRAMADOL. [Concomitant]
     Active Substance: TRAMADOL
     Dosage: 100 MG/MK, 20?20?20?0, DROPS, 1/12 MILLILITRE
     Route: 048
  5. IBUPROFEN. [Suspect]
     Active Substance: IBUPROFEN
     Dosage: 400 MG, NEED, TABLETS
     Route: 048
  6. ACETYLSALICYLIC ACID [Concomitant]
     Active Substance: ASPIRIN
     Dosage: 100 MG, QD, 1?0?0?0, TABLET
     Route: 048
  7. SODIUM PICOSULFATE [Concomitant]
     Active Substance: SODIUM PICOSULFATE
     Dosage: 19?0?0?0, DROPS, 1/12 MILLILITRE
     Route: 048
  8. PANTOPRAZOLE [Concomitant]
     Active Substance: PANTOPRAZOLE
     Dosage: 400 MILLIGRAM, AS NECESSARY, NEED, TABLETS
     Route: 048
  9. ENOXAPARIN [Concomitant]
     Active Substance: ENOXAPARIN
     Dosage: NK MG
     Route: 058
  10. CANDESARTAN. [Suspect]
     Active Substance: CANDESARTAN
     Dosage: 8 MG, QD, 0?1?0?0, TABLET
     Route: 048
  11. LEVOTHYROXINE SODIUM. [Concomitant]
     Active Substance: LEVOTHYROXINE SODIUM
     Dosage: 25 ?G, QD, 1?0?0?0, TABLETTEN
     Route: 048
  12. VITAMIN D [COLECALCIFEROL] [Concomitant]
     Active Substance: CHOLECALCIFEROL
     Dosage: 1 DOSAGE FORM, QW, 20,000 IU, FRIDAY 1, CAPSULES
     Route: 048

REACTIONS (4)
  - Abdominal pain lower [Unknown]
  - Product prescribing error [Unknown]
  - Flatulence [Unknown]
  - Pyrexia [Unknown]
